FAERS Safety Report 18228697 (Version 1)
Quarter: 2020Q3

REPORT INFORMATION
  Report Type: Spontaneous
  Country: PT (occurrence: PT)
  Receive Date: 20200903
  Receipt Date: 20200903
  Transmission Date: 20201103
  Serious: Yes (Life-Threatening, Hospitalization)
  Sender: FDA-Public Use
  Company Number: PT-BEXIMCO-2020BEX00039

PATIENT
  Age: 65 Year
  Sex: Female

DRUGS (11)
  1. IBUPROFEN. [Suspect]
     Active Substance: IBUPROFEN
     Indication: ANALGESIC THERAPY
     Dosage: 400 MG
     Route: 065
  2. LISINOPRIL AND HYDROCHLOROTHIAZIDE [Suspect]
     Active Substance: HYDROCHLOROTHIAZIDE\LISINOPRIL
     Indication: HYPERTENSION
     Route: 065
  3. METFORMIN HYDROCHLORIDE/VILDAGLIPTIN [Suspect]
     Active Substance: METFORMIN HYDROCHLORIDE\VILDAGLIPTIN
     Dosage: 1000/50 MG, 2X/DAY
     Route: 065
  4. INSULIN [Concomitant]
     Active Substance: INSULIN NOS
     Dosage: 4 IU, ONCE
     Route: 065
  5. METFORMIN HYDROCHLORIDE/VILDAGLIPTIN [Suspect]
     Active Substance: METFORMIN HYDROCHLORIDE\VILDAGLIPTIN
     Indication: TYPE 2 DIABETES MELLITUS
     Dosage: 1000/50 MG, 2X/DAY
     Route: 065
  6. KETOROLAC [Suspect]
     Active Substance: KETOROLAC TROMETHAMINE
     Indication: ANALGESIC THERAPY
     Dosage: 30 MG
     Route: 065
  7. TRAMODOL [Concomitant]
     Active Substance: TRAMADOL
     Indication: ANALGESIC THERAPY
     Dosage: 100 MG
     Route: 065
  8. GLUCOSE [Concomitant]
     Active Substance: DEXTROSE
     Dosage: UNK, ONCE
     Route: 065
  9. GENERAL ANESTHESIA [Concomitant]
     Active Substance: UNSPECIFIED INGREDIENT
     Route: 065
  10. INSULIN [Concomitant]
     Active Substance: INSULIN NOS
     Dosage: 10 IU, ONCE
     Route: 065
  11. PARACETAMOL [Concomitant]
     Active Substance: ACETAMINOPHEN
     Indication: ANALGESIC THERAPY
     Dosage: 1 G
     Route: 065

REACTIONS (3)
  - Toxicity to various agents [Recovered/Resolved]
  - Lactic acidosis [Recovered/Resolved]
  - Cardiac arrest [Recovered/Resolved]
